FAERS Safety Report 5661885-4 (Version None)
Quarter: 2008Q1

REPORT INFORMATION
  Report Type: 
  Country: None (occurrence: None)
  Receive Date: 20080312
  Receipt Date: 20080305
  Transmission Date: 20080703
  Serious: Yes (Other)
  Sender: FDA-Public Use
  Company Number: US-JNJFOC-20080204109

PATIENT
  Sex: Female
  Weight: 45.36 kg

DRUGS (4)
  1. RISPERDAL [Suspect]
     Route: 048
  2. RISPERDAL [Suspect]
     Indication: BIPOLAR DISORDER
     Route: 048
  3. UNSPECIFIED SLEEP MEDICATION [Concomitant]
  4. PAIN MEDICATION [Concomitant]

REACTIONS (17)
  - ABORTION SPONTANEOUS [None]
  - BLADDER DISORDER [None]
  - BLOOD GLUCOSE INCREASED [None]
  - BLOOD PRESSURE INCREASED [None]
  - BREAST ENLARGEMENT [None]
  - CYSTITIS INTERSTITIAL [None]
  - DRUG EXPOSURE DURING PREGNANCY [None]
  - EMOTIONAL DISORDER [None]
  - GALACTORRHOEA [None]
  - HORMONE LEVEL ABNORMAL [None]
  - HYPERHIDROSIS [None]
  - INSOMNIA [None]
  - MUSCLE TWITCHING [None]
  - RHINITIS [None]
  - SUICIDAL IDEATION [None]
  - WEIGHT INCREASED [None]
  - WITHDRAWAL SYNDROME [None]
